FAERS Safety Report 7933043-1 (Version None)
Quarter: 2011Q4

REPORT INFORMATION
  Report Type: 
  Country: None (occurrence: None)
  Receive Date: 20111122
  Receipt Date: 20111109
  Transmission Date: 20120403
  Serious: Yes (Other)
  Sender: FDA-Public Use
  Company Number: US-ELI_LILLY_AND_COMPANY-US201009003954

PATIENT
  Sex: Female
  Weight: 73.016 kg

DRUGS (6)
  1. FOLIC ACID [Concomitant]
     Dosage: 1 MG 3 TAB, 4/D
     Route: 065
  2. FORTEO [Suspect]
     Indication: OSTEOPOROSIS
     Dosage: 20 UG, QD
     Route: 058
     Dates: end: 20100701
  3. METHOTREXATE [Concomitant]
     Indication: RHEUMATOID ARTHRITIS
     Dosage: 25 MG/ML 0.5 ML,UNK
     Route: 030
  4. PLAQUINOL TAB [Concomitant]
     Indication: RHEUMATOID ARTHRITIS
     Dosage: 200 MG, 2/D
     Route: 048
  5. FORTEO [Suspect]
     Dosage: 20 UG, QD
     Route: 058
  6. CALCIUM D3 [Concomitant]
     Dosage: UNK, UNKNOWN
     Route: 065

REACTIONS (2)
  - RHEUMATOID ARTHRITIS [None]
  - ANKLE FRACTURE [None]
